FAERS Safety Report 5766719-5 (Version None)
Quarter: 2008Q2

REPORT INFORMATION
  Report Type: 
  Country: None (occurrence: None)
  Receive Date: 20080609
  Receipt Date: 20080523
  Transmission Date: 20081010
  Serious: Yes (Hospitalization)
  Sender: FDA-Public Use
  Company Number: 2008BM000110

PATIENT
  Age: 20 Year
  Sex: Female
  Weight: 83.2804 kg

DRUGS (12)
  1. 6R-BH4 (SAPROPTERIN DIHYDROCHLORIDE) TABLET, 100MG [Suspect]
     Indication: SICKLE CELL ANAEMIA
     Dosage: 2.5 MG/KG; QD; PO; 5 MG/KG; QD; PO; 10 MG/KG; QD; PO; 10 MG/KG; QD; PO
     Route: 048
     Dates: start: 20080311, end: 20080408
  2. 6R-BH4 (SAPROPTERIN DIHYDROCHLORIDE) TABLET, 100MG [Suspect]
     Indication: SICKLE CELL ANAEMIA
     Dosage: 2.5 MG/KG; QD; PO; 5 MG/KG; QD; PO; 10 MG/KG; QD; PO; 10 MG/KG; QD; PO
     Route: 048
     Dates: start: 20080409, end: 20080513
  3. 6R-BH4 (SAPROPTERIN DIHYDROCHLORIDE) TABLET, 100MG [Suspect]
     Indication: SICKLE CELL ANAEMIA
     Dosage: 2.5 MG/KG; QD; PO; 5 MG/KG; QD; PO; 10 MG/KG; QD; PO; 10 MG/KG; QD; PO
     Route: 048
     Dates: start: 20080514, end: 20080522
  4. 6R-BH4 (SAPROPTERIN DIHYDROCHLORIDE) TABLET, 100MG [Suspect]
     Indication: SICKLE CELL ANAEMIA
     Dosage: 2.5 MG/KG; QD; PO; 5 MG/KG; QD; PO; 10 MG/KG; QD; PO; 10 MG/KG; QD; PO
     Route: 048
     Dates: start: 20080528
  5. LEVAQUIN [Concomitant]
  6. DARVOCET /00220901/ [Concomitant]
  7. AMOXICILLIN [Concomitant]
  8. FOLIC ACID [Concomitant]
  9. MOTRIN [Concomitant]
  10. KETOROLAC TROMETHAMINE [Concomitant]
  11. MS CONTIN [Concomitant]
  12. OXYCONTIN [Concomitant]

REACTIONS (8)
  - DIZZINESS [None]
  - DYSPNOEA [None]
  - EAR PAIN [None]
  - FATIGUE [None]
  - OTITIS MEDIA [None]
  - PHARYNGOLARYNGEAL PAIN [None]
  - TACHYCARDIA [None]
  - VERTIGO [None]
